FAERS Safety Report 10560844 (Version 3)
Quarter: 2014Q4

REPORT INFORMATION
  Report Type: Report from Study
  Country: FR (occurrence: FR)
  Receive Date: 20141103
  Receipt Date: 20141211
  Transmission Date: 20150529
  Serious: Yes (Hospitalization, Other)
  Sender: FDA-Public Use
  Company Number: FR-EISAI MEDICAL RESEARCH-E7389-05474-CLI-FR

PATIENT
  Age: 42 Year
  Sex: Female

DRUGS (6)
  1. TRAMADOL [Concomitant]
     Active Substance: TRAMADOL
  2. ERIBULIN [Suspect]
     Active Substance: ERIBULIN
     Indication: BREAST CANCER
     Route: 041
     Dates: start: 20140611, end: 20140821
  3. PARACETAMOL [Concomitant]
     Active Substance: ACETAMINOPHEN
  4. KETOPROFENE [Concomitant]
     Active Substance: KETOPROFEN
  5. AVASTIN [Concomitant]
     Active Substance: BEVACIZUMAB
     Indication: BREAST CANCER
     Route: 041
     Dates: start: 20140611, end: 20140611
  6. INEXIUM [Concomitant]
     Active Substance: ESOMEPRAZOLE

REACTIONS (3)
  - Bone pain [Not Recovered/Not Resolved]
  - Altered state of consciousness [Recovered/Resolved]
  - Meningitis [Recovered/Resolved]

NARRATIVE: CASE EVENT DATE: 20140902
